FAERS Safety Report 12343632 (Version 1)
Quarter: 2016Q2

REPORT INFORMATION
  Report Type: Spontaneous
  Country: FR (occurrence: FR)
  Receive Date: 20160506
  Receipt Date: 20160506
  Transmission Date: 20160815
  Serious: Yes (Life-Threatening, Hospitalization)
  Sender: FDA-Public Use
  Company Number: FR-ASTRAZENECA-2016SE14162

PATIENT
  Age: 17439 Day
  Sex: Male

DRUGS (3)
  1. CRESTOR [Suspect]
     Active Substance: ROSUVASTATIN CALCIUM
     Route: 048
     Dates: end: 20151103
  2. AERIUS [Suspect]
     Active Substance: DESLORATADINE
     Route: 048
     Dates: end: 20151103
  3. LAMALINE [Suspect]
     Active Substance: ACETAMINOPHEN\CAFFEINE\OPIUM
     Indication: MIGRAINE
     Route: 048
     Dates: end: 20151103

REACTIONS (4)
  - Depression [Unknown]
  - Suicide attempt [Unknown]
  - Pancreatitis acute [Recovered/Resolved]
  - Therapy cessation [Unknown]

NARRATIVE: CASE EVENT DATE: 20151007
